FAERS Safety Report 25672527 (Version 1)
Quarter: 2025Q3

REPORT INFORMATION
  Report Type: Spontaneous
  Country: US (occurrence: US)
  Receive Date: 20250812
  Receipt Date: 20250812
  Transmission Date: 20251021
  Serious: No
  Sender: SANOFI AVENTIS
  Company Number: US-SA-2025SA234834

PATIENT
  Age: 2 Year
  Sex: Female

DRUGS (2)
  1. DUPIXENT [Suspect]
     Active Substance: DUPILUMAB
     Indication: Dermatitis atopic
     Dosage: 300 MG, Q4W
     Route: 058
     Dates: start: 202310
  2. AMOXICILLIN [Concomitant]
     Active Substance: AMOXICILLIN

REACTIONS (2)
  - Pharyngitis streptococcal [Recovering/Resolving]
  - Eczema [Recovering/Resolving]

NARRATIVE: CASE EVENT DATE: 20250101
